FAERS Safety Report 8319784-5 (Version None)
Quarter: 2012Q2

REPORT INFORMATION
  Report Type: 
  Country: None (occurrence: None)
  Receive Date: 20120427
  Receipt Date: 20120423
  Transmission Date: 20120825
  Serious: Yes (Hospitalization)
  Sender: FDA-Public Use
  Company Number: US-ELI_LILLY_AND_COMPANY-US201204008173

PATIENT
  Sex: Male
  Weight: 90.249 kg

DRUGS (7)
  1. ASPARIN [Concomitant]
     Dosage: UNK
  2. METOPROLOL TARTRATE [Concomitant]
     Dosage: UNK
  3. NITROGLYCERIN [Concomitant]
     Dosage: UNK
     Route: 062
  4. LOVENOX [Concomitant]
     Dosage: UNK
  5. PRASUGREL HYDROCHLORIDE [Suspect]
     Dosage: UNK
     Dates: start: 20120319
  6. PANTOPRAZOLE [Concomitant]
     Dosage: UNK
  7. SIMVASTATIN [Concomitant]
     Dosage: UNK

REACTIONS (1)
  - ACUTE MYOCARDIAL INFARCTION [None]
